FAERS Safety Report 9843682 (Version 1)
Quarter: 2014Q1

REPORT INFORMATION
  Report Type: Spontaneous
  Country: DK (occurrence: DK)
  Receive Date: 20140125
  Receipt Date: 20140125
  Transmission Date: 20141002
  Serious: Yes (Hospitalization)
  Sender: FDA-Public Use
  Company Number: DK-BRISTOL-MYERS SQUIBB COMPANY-20028320

PATIENT
  Age: 55 Year
  Sex: Female

DRUGS (8)
  1. FORXIGA [Suspect]
     Indication: TYPE 2 DIABETES MELLITUS
     Dosage: STYRKE: 10 MG.?FILM COATED TABLETS.
     Route: 048
     Dates: start: 20130713, end: 20131008
  2. SIMVASTATIN [Concomitant]
     Indication: HYPERCHOLESTEROLAEMIA
     Dosage: STYRKE: 40 MG
     Route: 048
  3. JANUVIA [Concomitant]
     Indication: TYPE 2 DIABETES MELLITUS
     Dosage: STYRKE: 100 MG?FILM COATED TABLETS.
     Route: 048
  4. METFORMIN [Concomitant]
     Indication: TYPE 2 DIABETES MELLITUS
  5. HJERTEMAGNYL [Concomitant]
  6. HYDROCHLOROTHIAZIDE [Concomitant]
  7. TRAMADOL HCL [Concomitant]
  8. AMLODIPINE [Concomitant]

REACTIONS (8)
  - Polymyositis [Recovering/Resolving]
  - Influenza like illness [Recovering/Resolving]
  - Cough [Recovering/Resolving]
  - Dyspnoea [Recovering/Resolving]
  - Back pain [Recovering/Resolving]
  - Musculoskeletal pain [Recovering/Resolving]
  - Muscular weakness [Recovering/Resolving]
  - Gait disturbance [Recovering/Resolving]
